FAERS Safety Report 20882375 (Version 1)
Quarter: 2022Q2

REPORT INFORMATION
  Report Type: Spontaneous
  Country: PK (occurrence: PK)
  Receive Date: 20220527
  Receipt Date: 20220527
  Transmission Date: 20220720
  Serious: Yes (Other)
  Sender: FDA-Public Use
  Company Number: PK-PFIZER INC-2020466059

PATIENT
  Age: 22 Year
  Sex: Female

DRUGS (6)
  1. ENBREL [Suspect]
     Active Substance: ETANERCEPT
     Indication: Rheumatoid arthritis
     Dosage: 50 MG, WEEKLY (FOR 6 MONTHS)
     Route: 058
  2. DELTACORTRIL [Concomitant]
     Active Substance: PREDNISOLONE
     Route: 065
  3. DELTACORTRIL [Concomitant]
     Active Substance: PREDNISOLONE
     Dosage: UNK
     Route: 065
  4. NAPROXEN [Concomitant]
     Active Substance: NAPROXEN
  5. SALAZODINE [Concomitant]
  6. Nocid [Concomitant]

REACTIONS (5)
  - Red blood cell sedimentation rate abnormal [Unknown]
  - Arthralgia [Unknown]
  - Off label use [Unknown]
  - Weight decreased [Unknown]
  - C-reactive protein increased [Unknown]
